FAERS Safety Report 11735062 (Version 1)
Quarter: 2015Q4

REPORT INFORMATION
  Report Type: Spontaneous
  Country: US (occurrence: None)
  Receive Date: 20151112
  Receipt Date: 20151112
  Transmission Date: 20160304
  Serious: No
  Sender: FDA-Public Use
  Company Number: None

PATIENT
  Age: 55 Year
  Sex: Female
  Weight: 82.1 kg

DRUGS (12)
  1. KLARON LOTION [Concomitant]
  2. MINIVELLE [Concomitant]
     Active Substance: ESTRADIOL
  3. DULERA [Concomitant]
     Active Substance: FORMOTEROL FUMARATE DIHYDRATE\MOMETASONE FUROATE
  4. SUDAFED [Concomitant]
     Active Substance: PSEUDOEPHEDRINE HYDROCHLORIDE
  5. HYDROXYZINE [Concomitant]
     Active Substance: HYDROXYZINE\HYDROXYZINE HYDROCHLORIDE
  6. PANTOPRAZOLE SODIUM TABLETS [Suspect]
     Active Substance: PANTOPRAZOLE SODIUM
     Indication: GASTROOESOPHAGEAL REFLUX DISEASE
     Dosage: 1 PILL
     Route: 048
     Dates: start: 20150930, end: 20151002
  7. SYNTHROID [Concomitant]
     Active Substance: LEVOTHYROXINE SODIUM
  8. DOXYCYCLINE. [Concomitant]
     Active Substance: DOXYCYCLINE
  9. MUCINEX [Concomitant]
     Active Substance: GUAIFENESIN
  10. HYDROXYZINE [Concomitant]
     Active Substance: HYDROXYZINE\HYDROXYZINE HYDROCHLORIDE
  11. TRIAMTERENE. [Concomitant]
     Active Substance: TRIAMTERENE
  12. RETIN-A MICRO [Concomitant]
     Active Substance: TRETINOIN

REACTIONS (3)
  - Gastrooesophageal reflux disease [None]
  - Dyspepsia [None]
  - Oesophageal pain [None]

NARRATIVE: CASE EVENT DATE: 20151001
